FAERS Safety Report 14325793 (Version 6)
Quarter: 2020Q3

REPORT INFORMATION
  Report Type: Report from Study
  Country: PT (occurrence: PT)
  Receive Date: 20171226
  Receipt Date: 20180507
  Transmission Date: 20201105
  Serious: Yes (Hospitalization, Other)
  Sender: FDA-Public Use
  Company Number: PT-MYLANLABS-2017M1081916

PATIENT
  Age: 58 Year
  Sex: Female

DRUGS (38)
  1. SODIUM LAURYL SULFATE [Concomitant]
     Active Substance: SODIUM LAURYL SULFATE
     Indication: CONSTIPATION
     Dosage: 1 DF, CYCLE 1.00 ENEMA PRN
     Route: 054
     Dates: start: 20160928
  2. MORPHINE SULFATE. [Concomitant]
     Active Substance: MORPHINE SULFATE
     Dosage: 20 MG, PRN
     Route: 048
     Dates: start: 20160928
  3. NYSTATIN. [Concomitant]
     Active Substance: NYSTATIN
     Indication: MUCOSAL INFLAMMATION
     Dosage: 6 ML, QID
     Route: 048
     Dates: start: 20161117
  4. TREMELIMUMAB. [Suspect]
     Active Substance: TREMELIMUMAB
     Dosage: 1 MG/KG, 4 WEEK
     Route: 042
     Dates: start: 20161130, end: 20161130
  5. MEDI4736 [Suspect]
     Active Substance: DURVALUMAB
     Indication: NON-SMALL CELL LUNG CANCER
     Dosage: 20 MG/KG, CYCLE, ONCE EVERY 4 WEEKS
     Route: 042
     Dates: start: 20161104, end: 20161104
  6. LACTULOSE. [Concomitant]
     Active Substance: LACTULOSE
     Indication: CONSTIPATION
     Dosage: 20 MG, UNK
     Route: 048
     Dates: start: 20160928
  7. SODIUM CITRATE. [Concomitant]
     Active Substance: SODIUM CITRATE
     Indication: CONSTIPATION
     Dosage: 1 DF, PRN 1.00 MICROENEMA PRN
     Route: 054
  8. MORPHINE SULFATE. [Concomitant]
     Active Substance: MORPHINE SULFATE
     Dosage: 20 MG, PRN
     Route: 048
  9. MIRTAZAPIN [Concomitant]
     Active Substance: MIRTAZAPINE
     Indication: DEPRESSION
     Dosage: 30 MG, QD
     Route: 048
     Dates: start: 20160907
  10. MIRTAZAPIN [Concomitant]
     Active Substance: MIRTAZAPINE
     Dosage: 30 MG +5ML, UNK
  11. THIAMAZOLE [Concomitant]
     Active Substance: METHIMAZOLE
     Indication: THYROID CYST
     Dosage: 5 MG, QD
     Route: 048
     Dates: start: 20160907
  12. BISACODIL ARENA [Concomitant]
     Indication: CONSTIPATION
     Dosage: 2 DF, QD
     Route: 048
     Dates: start: 20160928
  13. AMITRIPTILINA [Concomitant]
     Active Substance: AMITRIPTYLINE HYDROCHLORIDE
     Indication: DEPRESSION
     Dosage: 25 MG, BID
     Route: 048
     Dates: start: 20160928
  14. METILPREDNISOLONA                  /00049601/ [Concomitant]
     Active Substance: METHYLPREDNISOLONE
     Indication: PAIN
     Dosage: 0.5 MG, QD
     Route: 048
     Dates: start: 20161021
  15. VENLAFAXINE [Suspect]
     Active Substance: VENLAFAXINE HYDROCHLORIDE
     Indication: DEPRESSION
     Dosage: 75 MG, QH
     Route: 048
     Dates: start: 20161229
  16. TREMELIMUMAB. [Suspect]
     Active Substance: TREMELIMUMAB
     Indication: NON-SMALL CELL LUNG CANCER
     Dosage: 1 MG/KG, CYCLE (ONCE EVERY FOUR WEEKS)
     Route: 042
     Dates: start: 20161104, end: 20161104
  17. TREMELIMUMAB. [Suspect]
     Active Substance: TREMELIMUMAB
     Dosage: 1 MG/KG, CYCLE (ONCE EVERY FOUR WEEKS)
     Route: 042
     Dates: start: 20161130, end: 20161130
  18. PANTOPRAZOLE [Concomitant]
     Active Substance: PANTOPRAZOLE
     Indication: PROPHYLAXIS
     Dosage: 40 MG, QD
     Route: 048
     Dates: start: 20160928
  19. VENLAFAXINE [Suspect]
     Active Substance: VENLAFAXINE HYDROCHLORIDE
     Dosage: 150 MG, QD
     Route: 048
     Dates: start: 20160907
  20. VENLAFAXINE [Suspect]
     Active Substance: VENLAFAXINE HYDROCHLORIDE
     Dosage: 225 MG, QD
     Route: 048
     Dates: start: 20161128
  21. MEDI4736 [Suspect]
     Active Substance: DURVALUMAB
     Dosage: 20 MG/KG, 4 WEEK
     Route: 042
     Dates: start: 20161130, end: 20161130
  22. MORPHINE SULFATE. [Concomitant]
     Active Substance: MORPHINE SULFATE
     Indication: PAIN
     Dosage: 20 MG, PRN
     Route: 048
     Dates: start: 20161104
  23. SUCRALFATE. [Concomitant]
     Active Substance: SUCRALFATE
     Indication: PROPHYLAXIS
     Dosage: 3 DF, QD
     Route: 048
     Dates: start: 20160928
  24. TIAMAZOL [Concomitant]
     Indication: THYROID CYST
     Dosage: UNK
     Dates: start: 20160907
  25. VENLAFAXINE [Suspect]
     Active Substance: VENLAFAXINE HYDROCHLORIDE
     Dosage: 75 UNK, UNK
     Route: 048
  26. TREMELIMUMAB. [Suspect]
     Active Substance: TREMELIMUMAB
     Dosage: 1 MG/KG, 4 WEEK
     Route: 042
     Dates: start: 20161104, end: 20161104
  27. LACTULOSE. [Concomitant]
     Active Substance: LACTULOSE
     Dosage: 3 DF, QD 1.00 SPOON TID
     Route: 048
     Dates: start: 20160928
  28. GABAPENTIN. [Concomitant]
     Active Substance: GABAPENTIN
     Indication: PAIN
     Dosage: 40 MG, TID
     Route: 048
     Dates: start: 20160928
  29. CLOBAZAM. [Concomitant]
     Active Substance: CLOBAZAM
     Indication: DEPRESSION
     Dosage: 20 MG, PRN
     Route: 048
     Dates: start: 20160907
  30. SUCRALFATE. [Concomitant]
     Active Substance: SUCRALFATE
     Dosage: 1.00 SACHET, QID
  31. MORPHINE SULFATE. [Concomitant]
     Active Substance: MORPHINE SULFATE
     Dosage: 20 MG, PRN
     Route: 048
  32. SENE [Concomitant]
     Indication: CONSTIPATION
     Dosage: 2 DF, QD
     Route: 048
     Dates: start: 20160928
  33. MEDI4736 [Suspect]
     Active Substance: DURVALUMAB
     Dosage: 20 MG/KG, ONCE EVERY 4 WEEK
     Route: 042
     Dates: start: 20161130, end: 20161130
  34. MEDI4736 [Suspect]
     Active Substance: DURVALUMAB
     Dosage: 20 MG/KG,4 WEEK
     Route: 042
     Dates: start: 20161104, end: 20161104
  35. GABAPENTIN. [Concomitant]
     Active Substance: GABAPENTIN
     Dosage: 400 MG, TID
     Route: 048
     Dates: start: 20160928
  36. FENTANYL. [Concomitant]
     Active Substance: FENTANYL
     Indication: PAIN
     Dosage: 52 G, CYCLE, 50.00 UG EVERY 72H
     Route: 003
     Dates: start: 20160928
  37. MIRTAZAPIN [Concomitant]
     Active Substance: MIRTAZAPINE
     Dosage: 30 UNK, UNK
  38. TIAMAZOL [Concomitant]
     Dosage: 5 MG, QD
     Route: 048

REACTIONS (1)
  - Drug-induced liver injury [Not Recovered/Not Resolved]

NARRATIVE: CASE EVENT DATE: 20161229
